FAERS Safety Report 15053076 (Version 3)
Quarter: 2018Q4

REPORT INFORMATION
  Report Type: Spontaneous
  Country: BR (occurrence: BR)
  Receive Date: 20180622
  Receipt Date: 20181004
  Transmission Date: 20190204
  Serious: Yes (Other)
  Sender: FDA-Public Use
  Company Number: BR-PFIZER INC-2018241192

PATIENT
  Age: 73 Year
  Sex: Female

DRUGS (2)
  1. LORAX [Suspect]
     Active Substance: LORAZEPAM
     Indication: INSOMNIA
     Dosage: 2 MG, DAILY (1 TABLET PER DAY)
  2. ATORVASTATIN CALCIUM. [Concomitant]
     Active Substance: ATORVASTATIN CALCIUM
     Dosage: UNK
     Dates: start: 201709

REACTIONS (9)
  - Fall [Recovered/Resolved]
  - Eye disorder [Not Recovered/Not Resolved]
  - Syncope [Recovered/Resolved]
  - Cataract [Recovered/Resolved]
  - Rib fracture [Recovered/Resolved]
  - Feeling abnormal [Recovered/Resolved]
  - Myopia [Not Recovered/Not Resolved]
  - Sleep disorder [Recovered/Resolved]
  - Contusion [Recovered/Resolved]

NARRATIVE: CASE EVENT DATE: 2008
